FAERS Safety Report 7328009-9 (Version None)
Quarter: 2011Q1

REPORT INFORMATION
  Report Type: 
  Country: None (occurrence: None)
  Receive Date: 20110225
  Receipt Date: 20110225
  Transmission Date: 20110831
  Serious: Yes (Hospitalization, Disabling, Other)
  Sender: FDA-Public Use
  Company Number: None

PATIENT
  Sex: Female
  Weight: 69.4003 kg

DRUGS (2)
  1. BONIVA [Suspect]
     Dosage: 150MG MONTHLY ORAL
     Route: 048
     Dates: start: 20050601, end: 20110201
  2. FOSAMAX [Suspect]
     Indication: OSTEOPENIA
     Dosage: 70MG WEEKLY ORAL
     Route: 048
     Dates: start: 20030901, end: 20050601

REACTIONS (5)
  - PATHOLOGICAL FRACTURE [None]
  - FEMUR FRACTURE [None]
  - FALL [None]
  - FOOT FRACTURE [None]
  - IMPAIRED HEALING [None]
